FAERS Safety Report 6546900-8 (Version None)
Quarter: 2010Q1

REPORT INFORMATION
  Report Type: 
  Country: None (occurrence: None)
  Receive Date: 20100119
  Receipt Date: 20100104
  Transmission Date: 20100710
  Serious: Yes (Death, Hospitalization)
  Sender: FDA-Public Use
  Company Number: 2009AC000497

PATIENT
  Age: 80 Year
  Sex: Male

DRUGS (11)
  1. DIGOXIN [Suspect]
     Dosage: 0.125 MG; PO
     Route: 048
     Dates: start: 20041201
  2. PROTONIX [Concomitant]
  3. WARFARIN SODIUM [Concomitant]
  4. JANTOVEN [Concomitant]
  5. VITAMIN K TAB [Concomitant]
  6. OMEPRAZOLE [Concomitant]
  7. LISINOPRIL [Concomitant]
  8. POTASSIUM CHLORIDE [Concomitant]
  9. TYLENOL-500 [Concomitant]
  10. LEVAQUIN [Concomitant]
  11. REQUIP [Concomitant]

REACTIONS (18)
  - ATRIAL FIBRILLATION [None]
  - CEREBROVASCULAR ACCIDENT [None]
  - CONFUSIONAL STATE [None]
  - DIARRHOEA [None]
  - ECONOMIC PROBLEM [None]
  - GAIT DISTURBANCE [None]
  - GASTROINTESTINAL HAEMORRHAGE [None]
  - HEPATITIS [None]
  - HYPERTENSION [None]
  - HYPONATRAEMIA [None]
  - ILEUS [None]
  - INFLUENZA [None]
  - INJURY [None]
  - NASAL CONGESTION [None]
  - PNEUMONIA [None]
  - SKIN ULCER [None]
  - SURGERY [None]
  - UNEVALUABLE EVENT [None]
